FAERS Safety Report 5894214-1 (Version None)
Quarter: 2008Q3

REPORT INFORMATION
  Report Type: 
  Country: None (occurrence: None)
  Receive Date: 20080923
  Receipt Date: 20080825
  Transmission Date: 20090109
  Serious: Yes (Other)
  Sender: FDA-Public Use
  Company Number: US-ASTRAZENECA-2008UW03387

PATIENT
  Age: 722 Month
  Sex: Male
  Weight: 85.9 kg

DRUGS (9)
  1. SEROQUEL [Suspect]
     Indication: BIPOLAR DISORDER
     Dosage: 100MG -200MG DAILY
     Route: 048
     Dates: start: 20070822, end: 20080116
  2. SEROQUEL [Suspect]
     Indication: POST-TRAUMATIC STRESS DISORDER
     Dosage: 100MG -200MG DAILY
     Route: 048
     Dates: start: 20070822, end: 20080116
  3. SEROQUEL [Suspect]
     Dosage: 300MG-400MG DAILY
     Route: 048
     Dates: start: 20071211, end: 20080208
  4. SEROQUEL [Suspect]
     Dosage: 300MG-400MG DAILY
     Route: 048
     Dates: start: 20071211, end: 20080208
  5. DEPAKOTE [Concomitant]
     Indication: BIPOLAR DISORDER
     Dosage: 250/500 DAILY
     Route: 048
     Dates: end: 20071201
  6. WELLBUTRIN [Concomitant]
     Indication: DEPRESSION
  7. TRAZODONE HCL [Concomitant]
     Indication: SLEEP DISORDER THERAPY
     Dosage: 150 MG QHS PRN
  8. THORAZINE [Concomitant]
  9. RISPERDAL [Concomitant]

REACTIONS (1)
  - CATARACT [None]
